FAERS Safety Report 12886115 (Version 1)
Quarter: 2016Q4

REPORT INFORMATION
  Report Type: Spontaneous
  Country: US (occurrence: US)
  Receive Date: 20161025
  Receipt Date: 20161025
  Transmission Date: 20170207
  Serious: Yes (Disabling)
  Sender: FDA-Public Use
  Company Number: None

PATIENT
  Age: 28 Year
  Sex: Female
  Weight: 56.25 kg

DRUGS (2)
  1. CIPROFLOXACIN. [Suspect]
     Active Substance: CIPROFLOXACIN
     Indication: CYSTITIS
     Dosage: ?          QUANTITY:6 CAPSULE(S); EVERY 12 HOURS?
     Route: 048
     Dates: start: 20150415, end: 20150418
  2. TUMERIC [Concomitant]
     Active Substance: TURMERIC

REACTIONS (6)
  - Arthralgia [None]
  - Tendon rupture [None]
  - Joint lock [None]
  - Joint swelling [None]
  - Tendon pain [None]
  - Asthenia [None]

NARRATIVE: CASE EVENT DATE: 20150418
